FAERS Safety Report 19810920 (Version 1)
Quarter: 2021Q3

REPORT INFORMATION
  Report Type: Spontaneous
  Country: US (occurrence: US)
  Receive Date: 20210909
  Receipt Date: 20210909
  Transmission Date: 20211014
  Serious: Yes (Other)
  Sender: FDA-Public Use
  Company Number: US-PURDUE-USA-2021-0283366

PATIENT
  Sex: Male

DRUGS (1)
  1. OXYCONTIN [Suspect]
     Active Substance: OXYCODONE HYDROCHLORIDE
     Indication: PRODUCT USED FOR UNKNOWN INDICATION
     Dosage: UNKNOWN
     Route: 048

REACTIONS (16)
  - Erectile dysfunction [Unknown]
  - Drug abuse [Unknown]
  - Swelling [Unknown]
  - Blood pressure increased [Unknown]
  - Cardiac disorder [Unknown]
  - Brain neoplasm [Unknown]
  - Contusion [Unknown]
  - Syncope [Unknown]
  - Vision blurred [Unknown]
  - Amnesia [Unknown]
  - Constipation [Unknown]
  - Depression [Unknown]
  - Hyperhidrosis [Unknown]
  - Tension [Unknown]
  - Drug withdrawal syndrome [Unknown]
  - Arthralgia [Unknown]
